FAERS Safety Report 21423831 (Version 1)
Quarter: 2022Q4

REPORT INFORMATION
  Report Type: Spontaneous
  Country: US (occurrence: None)
  Receive Date: 20221006
  Receipt Date: 20221006
  Transmission Date: 20230112
  Serious: Yes (Life-Threatening, Hospitalization)
  Sender: FDA-Public Use
  Company Number: None

PATIENT
  Sex: Female

DRUGS (1)
  1. CAPECITABINE [Suspect]
     Active Substance: CAPECITABINE
     Dosage: 1000 MG BID ORAL
     Route: 048

REACTIONS (12)
  - Platelet count decreased [None]
  - Pyrexia [None]
  - Neutrophil count decreased [None]
  - Palmar-plantar erythrodysaesthesia syndrome [None]
  - Head discomfort [None]
  - Hypoacusis [None]
  - Nausea [None]
  - Skin wrinkling [None]
  - Dry skin [None]
  - Skin burning sensation [None]
  - Alopecia [None]
  - Fatigue [None]
